FAERS Safety Report 21803320 (Version 3)
Quarter: 2023Q1

REPORT INFORMATION
  Report Type: Report from Study
  Country: US (occurrence: US)
  Receive Date: 20230101
  Receipt Date: 20230309
  Transmission Date: 20230417
  Serious: Yes (Hospitalization, Other)
  Sender: FDA-Public Use
  Company Number: US-ABBVIE-4254374

PATIENT
  Age: 56 Year
  Sex: Female

DRUGS (1)
  1. HUMIRA [Suspect]
     Active Substance: ADALIMUMAB
     Indication: Rheumatoid arthritis
     Dosage: CITRATE FREE, FORM STRENGTH: 40 MILLIGRAM
     Route: 058
     Dates: start: 20210701

REACTIONS (19)
  - Loss of consciousness [Recovered/Resolved]
  - Weight decreased [Recovering/Resolving]
  - COVID-19 [Recovered/Resolved]
  - Limb injury [Recovering/Resolving]
  - Stress [Recovering/Resolving]
  - Malaise [Unknown]
  - Influenza [Recovered/Resolved]
  - Dysgraphia [Unknown]
  - Amnesia [Not Recovered/Not Resolved]
  - Pain [Unknown]
  - Head injury [Recovering/Resolving]
  - Adverse drug reaction [Unknown]
  - Colitis [Unknown]
  - Fall [Recovering/Resolving]
  - Decreased appetite [Recovering/Resolving]
  - Parosmia [Unknown]
  - Diarrhoea [Unknown]
  - Blood test abnormal [Unknown]
  - Drug hypersensitivity [Unknown]

NARRATIVE: CASE EVENT DATE: 20221208
